FAERS Safety Report 25836673 (Version 2)
Quarter: 2025Q4

REPORT INFORMATION
  Report Type: Spontaneous
  Country: EU (occurrence: EU)
  Receive Date: 20250923
  Receipt Date: 20251029
  Transmission Date: 20260119
  Serious: Yes (Other)
  Sender: RANBAXY
  Company Number: EU-SUN PHARMACEUTICALS INDUSTRIES LTD.-2025RR-527761

PATIENT
  Age: 49 Year
  Sex: Female

DRUGS (1)
  1. TERBINAFINE [Suspect]
     Active Substance: TERBINAFINE
     Indication: Onychomycosis
     Dosage: UNK
     Route: 048
     Dates: start: 202407, end: 202409

REACTIONS (2)
  - Toothache [Recovered/Resolved]
  - Pulpless tooth [Recovered/Resolved]

NARRATIVE: CASE EVENT DATE: 20240701
